FAERS Safety Report 11760434 (Version 1)
Quarter: 2015Q4

REPORT INFORMATION
  Report Type: Spontaneous
  Country: US (occurrence: US)
  Receive Date: 20151120
  Receipt Date: 20151120
  Transmission Date: 20160304
  Serious: No
  Sender: FDA-Public Use
  Company Number: US-ELI_LILLY_AND_COMPANY-US201211003307

PATIENT
  Age: 79 Year
  Sex: Female
  Weight: 41 kg

DRUGS (1)
  1. FORTEO [Suspect]
     Active Substance: TERIPARATIDE
     Indication: OSTEOPOROSIS
     Dosage: 20 UG, QD
     Dates: start: 201211

REACTIONS (5)
  - Abdominal pain upper [Unknown]
  - Dyspepsia [Unknown]
  - Abdominal discomfort [Unknown]
  - Ulcer [Unknown]
  - Nausea [Unknown]

NARRATIVE: CASE EVENT DATE: 201211
